FAERS Safety Report 4339533-5 (Version None)
Quarter: 2004Q2

REPORT INFORMATION
  Report Type: 
  Country: None (occurrence: None)
  Receive Date: 20040412
  Receipt Date: 20040406
  Transmission Date: 20050107
  Serious: Yes (Hospitalization, Disabling, Other)
  Sender: FDA-Public Use
  Company Number: 2003-09-2724

PATIENT
  Age: 44 Year
  Sex: Female
  Weight: 68.0396 kg

DRUGS (22)
  1. PEG-INTRON [Suspect]
     Indication: HEPATITIS C
     Dosage: 120 MU QWK SUBCUTANEOUS
     Route: 058
     Dates: start: 20011102, end: 20020301
  2. REBETOL [Suspect]
     Indication: HEPATITIS C
     Dosage: 1000 MG QD ORAL
     Route: 048
     Dates: start: 20011102, end: 20020301
  3. PROPRANOLOL [Concomitant]
  4. PHENERGAN [Concomitant]
  5. NEXIUM [Concomitant]
  6. TRAZODONE HCL [Concomitant]
  7. FOLIC ACID [Concomitant]
  8. LORAZEPAM [Concomitant]
  9. UNIVASC [Concomitant]
  10. TRAMADOL HCL [Concomitant]
  11. LORAZEPAM [Concomitant]
  12. PRILOSEC [Concomitant]
  13. ZOFRAN [Concomitant]
  14. ULTRAM [Concomitant]
  15. CELEXA [Concomitant]
  16. CYCLOBENZAPRINE [Concomitant]
  17. CLARITIN [Concomitant]
  18. XANAX [Concomitant]
  19. KLONOPIN [Concomitant]
  20. DARVOCET-N 100 [Concomitant]
  21. ZOLOFT [Concomitant]
  22. ASPIRIN [Concomitant]

REACTIONS (55)
  - ABDOMINAL DISTENSION [None]
  - ABDOMINAL PAIN [None]
  - AMNESIA [None]
  - ANXIETY [None]
  - APLASTIC ANAEMIA [None]
  - ARTHRALGIA [None]
  - ASTHENIA [None]
  - ATAXIA [None]
  - BILE DUCT STENOSIS [None]
  - BILIARY DYSKINESIA [None]
  - BLOOD POTASSIUM DECREASED [None]
  - CEREBRAL PERFUSION PRESSURE DECREASED [None]
  - CHEST PAIN [None]
  - CHOLECYSTITIS [None]
  - CHOLELITHIASIS [None]
  - COGNITIVE DISORDER [None]
  - CONDITION AGGRAVATED [None]
  - DEMYELINATION [None]
  - DEPRESSION [None]
  - DIARRHOEA [None]
  - DIZZINESS [None]
  - DYSARTHRIA [None]
  - ELECTROCARDIOGRAM ST-T CHANGE [None]
  - ENCEPHALOPATHY [None]
  - FATIGUE [None]
  - GAIT DISTURBANCE [None]
  - GASTROENTERITIS [None]
  - HEADACHE [None]
  - HEMIPARESIS [None]
  - HEPATIC STEATOSIS [None]
  - INFLUENZA [None]
  - INSOMNIA [None]
  - INTERVERTEBRAL DISC DEGENERATION [None]
  - MENINGITIS ASEPTIC [None]
  - MENINGITIS CHEMICAL [None]
  - MENTAL IMPAIRMENT [None]
  - MOTOR DYSFUNCTION [None]
  - NAUSEA [None]
  - NERVOUS SYSTEM DISORDER [None]
  - NERVOUSNESS [None]
  - NEUROPATHY [None]
  - PAIN [None]
  - PANCREATITIS CHRONIC [None]
  - POLYNEUROPATHY [None]
  - QUADRIPARESIS [None]
  - RASH [None]
  - RENAL CYST [None]
  - RHEUMATOID ARTHRITIS [None]
  - SPONDYLOSIS [None]
  - TRANSIENT ISCHAEMIC ATTACK [None]
  - TREMOR [None]
  - UPPER RESPIRATORY TRACT INFECTION [None]
  - URINARY TRACT INFECTION [None]
  - VISION BLURRED [None]
  - WALKING AID USER [None]
